FAERS Safety Report 5917120-2 (Version None)
Quarter: 2008Q4

REPORT INFORMATION
  Report Type: 
  Country: None (occurrence: None)
  Receive Date: 20081014
  Receipt Date: 20081007
  Transmission Date: 20090506
  Serious: Yes (Hospitalization)
  Sender: FDA-Public Use
  Company Number: US-ELI_LILLY_AND_COMPANY-US200809003211

PATIENT
  Age: 54 Year
  Sex: Male

DRUGS (6)
  1. ALIMTA [Suspect]
     Dosage: UNK, EVERY THREE WEEKS
     Dates: start: 20080718, end: 20080808
  2. VITAMIN B-12 [Concomitant]
  3. FOLIC ACID [Concomitant]
  4. CORTICOSTEROID NOS [Concomitant]
  5. OXYCODONE HCL [Concomitant]
  6. LOVENOX [Concomitant]
     Dates: end: 20080101

REACTIONS (2)
  - PARANEOPLASTIC SYNDROME [None]
  - PEMPHIGOID [None]
